FAERS Safety Report 7676494-5 (Version None)
Quarter: 2011Q3

REPORT INFORMATION
  Report Type: 
  Country: None (occurrence: None)
  Receive Date: 20110811
  Receipt Date: 20110804
  Transmission Date: 20111222
  Serious: Yes (Death)
  Sender: FDA-Public Use
  Company Number: US-CELGENEUS-163-21880-11042079

PATIENT
  Sex: Male

DRUGS (4)
  1. DEXAMETHASONE [Concomitant]
     Route: 065
  2. CRESTOR [Concomitant]
     Route: 065
  3. FUROSEMIDE [Concomitant]
     Route: 065
  4. REVLIMID [Suspect]
     Indication: MULTIPLE MYELOMA
     Dosage: 25 MILLIGRAM
     Route: 048
     Dates: start: 20110301, end: 20110101

REACTIONS (1)
  - CARDIAC ARREST [None]
